FAERS Safety Report 5679484-7 (Version None)
Quarter: 2008Q1

REPORT INFORMATION
  Report Type: 
  Country: None (occurrence: None)
  Receive Date: 20080321
  Receipt Date: 20080307
  Transmission Date: 20080703
  Serious: Yes (Death)
  Sender: FDA-Public Use
  Company Number: 2008BI004624

PATIENT
  Age: 34 Year
  Sex: Male

DRUGS (10)
  1. AVONEX [Suspect]
     Indication: RELAPSING-REMITTING MULTIPLE SCLEROSIS
     Dosage: 30 UG;QW;IM
     Route: 030
     Dates: start: 20070905, end: 20080104
  2. PREDNISOLONE [Concomitant]
  3. TEGRETOL [Concomitant]
  4. LANDSEN [Concomitant]
  5. LIPITOR [Concomitant]
  6. GLYSENNID [Concomitant]
  7. ALFAROL [Concomitant]
  8. GASTER D [Concomitant]
  9. BUP-4 [Concomitant]
  10. ROHYPNOL [Concomitant]

REACTIONS (2)
  - MYOCARDIAL INFARCTION [None]
  - SLEEP APNOEA SYNDROME [None]
